FAERS Safety Report 19461624 (Version 1)
Quarter: 2021Q2

REPORT INFORMATION
  Report Type: Report from Study
  Country: FR (occurrence: FR)
  Receive Date: 20210625
  Receipt Date: 20210625
  Transmission Date: 20210717
  Serious: Yes (Hospitalization)
  Sender: FDA-Public Use
  Company Number: FR-ROCHE-2851929

PATIENT
  Age: 70 Year
  Sex: Female
  Weight: 76 kg

DRUGS (3)
  1. BEVACIZUMAB. [Suspect]
     Active Substance: BEVACIZUMAB
     Indication: OVARIAN CANCER RECURRENT
     Dosage: ON 09/JUN/2021, THERAPY WITH BEVACIZUMAB WAS INTERRUPTED.
     Route: 042
     Dates: start: 20210528
  2. BLINDED ATEZOLIZUMAB [Suspect]
     Active Substance: ATEZOLIZUMAB
     Indication: OVARIAN CANCER RECURRENT
     Dosage: ON 09/MAY, 2021, RECEIVED MOST RECENT DOSE OF BLINDED ATEZOLIZUMAB PRIOR TO SAE
     Route: 042
     Dates: start: 20210428
  3. ELIQUIS [Concomitant]
     Active Substance: APIXABAN
     Dosage: 2 X 2.5 MILLIGRAM IN 1 DAY // 5 MILLIGRAM
     Route: 048
     Dates: start: 20181215

REACTIONS (1)
  - Ill-defined disorder [Recovering/Resolving]

NARRATIVE: CASE EVENT DATE: 20210609
